FAERS Safety Report 11447747 (Version 1)
Quarter: 2015Q3

REPORT INFORMATION
  Report Type: Spontaneous
  Country: US (occurrence: US)
  Receive Date: 20150831
  Receipt Date: 20150831
  Transmission Date: 20151125
  Serious: No
  Sender: FDA-Public Use
  Company Number: US-ELI_LILLY_AND_COMPANY-US200904001171

PATIENT
  Age: 58 Year
  Sex: Male

DRUGS (11)
  1. ADVAIR HFA [Concomitant]
     Active Substance: FLUTICASONE PROPIONATE\SALMETEROL XINAFOATE
  2. ACCUPRIL [Concomitant]
     Active Substance: QUINAPRIL HYDROCHLORIDE
  3. TRAZODONE [Concomitant]
     Active Substance: TRAZODONE HYDROCHLORIDE
  4. PRAVASTATIN [Concomitant]
     Active Substance: PRAVASTATIN\PRAVASTATIN SODIUM
  5. CARDURA [Concomitant]
     Active Substance: DOXAZOSIN MESYLATE
  6. GLUCOPHAGE [Concomitant]
     Active Substance: METFORMIN HYDROCHLORIDE
  7. ALTACE [Concomitant]
     Active Substance: RAMIPRIL
  8. CYMBALTA [Suspect]
     Active Substance: DULOXETINE HYDROCHLORIDE
     Indication: NEUROMYOPATHY
     Dosage: 30 MG, DAILY (1/D)
     Dates: start: 20090401
  9. ROBAXIN [Concomitant]
     Active Substance: METHOCARBAMOL
  10. NEURONTIN [Concomitant]
     Active Substance: GABAPENTIN
  11. VERAPAMIL [Concomitant]
     Active Substance: VERAPAMIL HYDROCHLORIDE

REACTIONS (6)
  - Eye pain [Unknown]
  - Nausea [Unknown]
  - Dizziness [Unknown]
  - Drug effect incomplete [Not Recovered/Not Resolved]
  - Abnormal sensation in eye [Unknown]
  - Vision blurred [Unknown]

NARRATIVE: CASE EVENT DATE: 200904
